FAERS Safety Report 5594456-9 (Version None)
Quarter: 2008Q1

REPORT INFORMATION
  Report Type: 
  Country: None (occurrence: None)
  Receive Date: 20080117
  Receipt Date: 20080111
  Transmission Date: 20080703
  Serious: Yes (Hospitalization, Other)
  Sender: FDA-Public Use
  Company Number: US-NOVOPROD-270978

PATIENT

DRUGS (2)
  1. NOVOSEVEN [Suspect]
     Indication: HAEMARTHROSIS
     Dosage: 14.4 + 9.6 + 4.8
     Route: 042
  2. NOVOSEVEN [Suspect]
     Dosage: 24 + 19.2

REACTIONS (3)
  - HYDRONEPHROSIS [None]
  - JUGULAR VEIN THROMBOSIS [None]
  - SUBCLAVIAN VEIN THROMBOSIS [None]
